FAERS Safety Report 6103391-9 (Version None)
Quarter: 2009Q1

REPORT INFORMATION
  Report Type: 
  Country: None (occurrence: None)
  Receive Date: 20090302
  Receipt Date: 20090223
  Transmission Date: 20090719
  Serious: Yes (Death, Hospitalization)
  Sender: FDA-Public Use
  Company Number: 20085914

PATIENT
  Age: 36 Year
  Sex: Male

DRUGS (1)
  1. LIORESAL [Suspect]
     Indication: MUSCLE SPASTICITY
     Dosage: 185 MCG, DAILY, INTRATHECAL - SEE B
     Route: 037

REACTIONS (4)
  - BRAIN SCAN ABNORMAL [None]
  - CARDIO-RESPIRATORY ARREST [None]
  - CONDITION AGGRAVATED [None]
  - MUSCLE SPASMS [None]
